FAERS Safety Report 9052999 (Version 2)
Quarter: 2013Q1

REPORT INFORMATION
  Report Type: Spontaneous
  Country: US (occurrence: US)
  Receive Date: 20130208
  Receipt Date: 20130325
  Transmission Date: 20140127
  Serious: Yes (Hospitalization)
  Sender: FDA-Public Use
  Company Number: US-BIOGENIDEC-2013BI011866

PATIENT
  Age: 64 Year
  Sex: Male

DRUGS (13)
  1. TYSABRI [Suspect]
     Indication: MULTIPLE SCLEROSIS
     Route: 042
     Dates: start: 20110620
  2. AVONEX [Concomitant]
     Indication: MULTIPLE SCLEROSIS
     Route: 030
  3. CELEXA [Concomitant]
  4. NORVASC [Concomitant]
  5. COREG [Concomitant]
  6. DIOVAN [Concomitant]
  7. HUMALOG [Concomitant]
  8. LEVEMIR [Concomitant]
  9. OMEPRAZOLE [Concomitant]
  10. CRESTOR [Concomitant]
  11. EXELON [Concomitant]
  12. DETROL LA [Concomitant]
  13. PREDNISONE [Concomitant]

REACTIONS (12)
  - Optic neuritis [Not Recovered/Not Resolved]
  - Hypotension [Unknown]
  - Liver function test abnormal [Unknown]
  - Hypothalamo-pituitary disorder [Unknown]
  - Vasculitis [Unknown]
  - Cognitive disorder [Unknown]
  - Hyperlipidaemia [Unknown]
  - Type 2 diabetes mellitus [Unknown]
  - Myopathy [Unknown]
  - Neuropathy peripheral [Unknown]
  - Adrenal insufficiency [Unknown]
  - Temporal arteritis [Unknown]
